FAERS Safety Report 18094226 (Version 1)
Quarter: 2020Q3

REPORT INFORMATION
  Report Type: Spontaneous
  Country: US (occurrence: US)
  Receive Date: 20200730
  Receipt Date: 20200730
  Transmission Date: 20201103
  Serious: No
  Sender: FDA-Public Use
  Company Number: US-ASTRAZENECA-2020SE93746

PATIENT
  Age: 29468 Day
  Sex: Male
  Weight: 85.9 kg

DRUGS (3)
  1. IMFINZI [Suspect]
     Active Substance: DURVALUMAB
     Indication: LUNG ADENOCARCINOMA
     Route: 040
     Dates: start: 20200511, end: 20200720
  2. BENADRYL CREAM [Concomitant]
     Active Substance: DIPHENHYDRAMINE\ZINC ACETATE
     Indication: RASH
     Route: 061
  3. CALAMINE LOTION [Concomitant]
     Active Substance: CALAMINE LOTION
     Indication: RASH
     Route: 061

REACTIONS (3)
  - Perineal rash [Not Recovered/Not Resolved]
  - Candida infection [Not Recovered/Not Resolved]
  - Varicella [Unknown]

NARRATIVE: CASE EVENT DATE: 20200720
